FAERS Safety Report 18680960 (Version 1)
Quarter: 2020Q4

REPORT INFORMATION
  Report Type: Spontaneous
  Country: FR (occurrence: FR)
  Receive Date: 20201230
  Receipt Date: 20201230
  Transmission Date: 20210114
  Serious: Yes (Other)
  Sender: FDA-Public Use
  Company Number: FR-AUROBINDO-AUR-APL-2020-063278

PATIENT

DRUGS (5)
  1. ONPATTRO [Suspect]
     Active Substance: PATISIRAN SODIUM
     Indication: AMYLOIDOSIS
     Dosage: 21 MILLIGRAM (Q3W)
     Route: 042
     Dates: start: 20201110, end: 20201110
  2. DEXCHLORPHENIRAMINE [Suspect]
     Active Substance: DEXCHLORPHENIRAMINE
     Indication: PROPHYLAXIS
     Dosage: 5 MILLIGRAM
     Route: 042
     Dates: start: 20201110
  3. PARACETAMOL TABLET [Suspect]
     Active Substance: ACETAMINOPHEN
     Indication: PROPHYLAXIS
     Dosage: 500 MILLIGRAM
     Route: 048
     Dates: start: 20201110
  4. CETIRIZINE [Suspect]
     Active Substance: CETIRIZINE HYDROCHLORIDE
     Indication: PROPHYLAXIS
     Dosage: UNK
     Route: 048
     Dates: start: 20201110
  5. FAMOTIDINE. [Suspect]
     Active Substance: FAMOTIDINE
     Indication: PROPHYLAXIS
     Dosage: 40 MILLIGRAM
     Route: 048
     Dates: start: 20201110

REACTIONS (4)
  - Hypotension [Recovered/Resolved]
  - Asthenia [Recovered/Resolved]
  - Tinnitus [Recovered/Resolved]
  - Headache [Recovered/Resolved]

NARRATIVE: CASE EVENT DATE: 20201113
